FAERS Safety Report 23592401 (Version 2)
Quarter: 2024Q2

REPORT INFORMATION
  Report Type: Spontaneous
  Country: IT (occurrence: IT)
  Receive Date: 20240304
  Receipt Date: 20240628
  Transmission Date: 20240716
  Serious: Yes (Hospitalization, Other)
  Sender: FDA-Public Use
  Company Number: IT-TEVA-VS-3163574

PATIENT
  Age: 52 Year
  Sex: Male

DRUGS (3)
  1. LEVETIRACETAM [Suspect]
     Active Substance: LEVETIRACETAM
     Indication: Trisomy 21
     Route: 065
  2. VALPROIC ACID [Suspect]
     Active Substance: VALPROIC ACID
     Indication: Trisomy 21
     Route: 065
  3. VALPROIC ACID [Suspect]
     Active Substance: VALPROIC ACID
     Indication: Trisomy 21
     Route: 065

REACTIONS (7)
  - Anxiety [Recovering/Resolving]
  - Motor dysfunction [Recovered/Resolved]
  - Catatonia [Recovering/Resolving]
  - Parkinsonism [Recovered/Resolved]
  - Loss of personal independence in daily activities [Recovering/Resolving]
  - Bradykinesia [Recovered/Resolved]
  - Aggression [Recovering/Resolving]
